FAERS Safety Report 5078413-7 (Version None)
Quarter: 2006Q3

REPORT INFORMATION
  Report Type: 
  Country: None (occurrence: None)
  Receive Date: 20060811
  Receipt Date: 20060804
  Transmission Date: 20061208
  Serious: Yes (Hospitalization)
  Sender: FDA-Public Use
  Company Number: PH-JNJFOC-20060801296

PATIENT
  Age: 38 Year
  Sex: Female

DRUGS (1)
  1. TOPAMAX [Suspect]
     Indication: MIGRAINE
     Route: 048

REACTIONS (5)
  - ASTHENIA [None]
  - LETHARGY [None]
  - PARAESTHESIA [None]
  - SLEEP DISORDER [None]
  - TRISMUS [None]
